FAERS Safety Report 7400738-8 (Version None)
Quarter: 2011Q2

REPORT INFORMATION
  Report Type: 
  Country: None (occurrence: None)
  Receive Date: 20110407
  Receipt Date: 20110329
  Transmission Date: 20111010
  Serious: Yes (Other)
  Sender: FDA-Public Use
  Company Number: A0919672A

PATIENT
  Sex: Female

DRUGS (9)
  1. TYKERB [Suspect]
     Indication: BREAST CANCER
     Dosage: 1250MG PER DAY
     Route: 048
     Dates: start: 20101225
  2. PEPCID [Concomitant]
  3. TYLENOL W/ CODEINE [Concomitant]
  4. IMODIUM [Concomitant]
  5. IBUPROFEN [Concomitant]
  6. PROCHLORPERAZINE TAB [Concomitant]
  7. LOMOTIL [Concomitant]
  8. XELODA [Suspect]
     Indication: BREAST CANCER
     Dosage: 3000MG PER DAY
     Route: 048
     Dates: start: 20101225, end: 20110101
  9. NEURONTIN [Concomitant]

REACTIONS (11)
  - DECREASED APPETITE [None]
  - HAEMORRHAGE [None]
  - MOUTH HAEMORRHAGE [None]
  - WEIGHT DECREASED [None]
  - DYSGEUSIA [None]
  - ORAL PAIN [None]
  - CONDITION AGGRAVATED [None]
  - DIARRHOEA [None]
  - EAR HAEMORRHAGE [None]
  - SKIN DISORDER [None]
  - OROPHARYNGEAL BLISTERING [None]
